FAERS Safety Report 6941154-2 (Version None)
Quarter: 2010Q3

REPORT INFORMATION
  Report Type: 
  Country: None (occurrence: None)
  Receive Date: 20100825
  Receipt Date: 20100629
  Transmission Date: 20110219
  Serious: No
  Sender: FDA-Public Use
  Company Number: US-BRISTOL-MYERS SQUIBB COMPANY-15128549

PATIENT
  Age: 83 Year
  Sex: Male
  Weight: 73 kg

DRUGS (14)
  1. ONGLYZA [Suspect]
     Dosage: TAKEN 2 TABS
     Route: 048
  2. LEVOXYL [Concomitant]
  3. IMIPRAMINE [Concomitant]
  4. GLIMEPIRIDE [Concomitant]
  5. HYDROCORTISONE [Concomitant]
  6. OXYBUTYNIN [Concomitant]
  7. PROTONIX [Concomitant]
  8. LIPITOR [Concomitant]
  9. MULTI-VITAMIN [Concomitant]
  10. VITAMIN D [Concomitant]
  11. VITAMIN B-12 [Concomitant]
  12. TRICOR [Concomitant]
  13. ENALAPRIL [Concomitant]
  14. ACETAMINOPHEN [Concomitant]

REACTIONS (5)
  - ASTHENIA [None]
  - DRUG INEFFECTIVE [None]
  - FATIGUE [None]
  - OVERDOSE [None]
  - TREMOR [None]
